FAERS Safety Report 22194454 (Version 2)
Quarter: 2023Q4

REPORT INFORMATION
  Report Type: Report from Study
  Country: CA (occurrence: CA)
  Receive Date: 20230411
  Receipt Date: 20231129
  Transmission Date: 20240110
  Serious: Yes (Other)
  Sender: FDA-Public Use
  Company Number: CA-002147023-PHHY2018CA013501

PATIENT
  Sex: Female

DRUGS (3)
  1. GILENYA [Suspect]
     Active Substance: FINGOLIMOD HYDROCHLORIDE
     Indication: Product used for unknown indication
     Dosage: UNK
     Route: 048
     Dates: start: 20180116
  2. GILENYA [Suspect]
     Active Substance: FINGOLIMOD HYDROCHLORIDE
     Dosage: 2 DOSAGE FORM, QD
     Route: 048
     Dates: start: 20190416
  3. FINGOLIMOD [Suspect]
     Active Substance: FINGOLIMOD
     Indication: Product used for unknown indication
     Dosage: 0.5 MG, QD
     Route: 065
     Dates: start: 20220511

REACTIONS (3)
  - Breast cancer [Unknown]
  - Dizziness [Unknown]
  - Extra dose administered [Unknown]

NARRATIVE: CASE EVENT DATE: 20190416
